FAERS Safety Report 8231215-2 (Version None)
Quarter: 2012Q1

REPORT INFORMATION
  Report Type: 
  Country: None (occurrence: None)
  Receive Date: 20120323
  Receipt Date: 20120323
  Transmission Date: 20120608
  Serious: Yes (Death)
  Sender: FDA-Public Use
  Company Number: None

PATIENT
  Sex: Male
  Weight: 101.15 kg

DRUGS (8)
  1. LISINOPRIL AND HYDROCHLOROTHIAZIDE [Concomitant]
  2. NEURONTIN [Suspect]
     Indication: PAIN
     Route: 048
  3. DOXEPIN HCL [Concomitant]
     Route: 048
  4. SYNTHROID [Concomitant]
  5. COMBIVENT [Concomitant]
  6. NEURONTIN [Concomitant]
  7. HYDROCODONE BITARTRATE + ACETAMINOPHEN [Concomitant]
  8. YCLOBENZAPRINE [Concomitant]

REACTIONS (8)
  - AGGRESSION [None]
  - HEAD INJURY [None]
  - COMPLETED SUICIDE [None]
  - MASS [None]
  - ABNORMAL BEHAVIOUR [None]
  - AGITATION [None]
  - GUN SHOT WOUND [None]
  - INCORRECT DOSE ADMINISTERED [None]
